FAERS Safety Report 12441687 (Version 6)
Quarter: 2016Q4

REPORT INFORMATION
  Report Type: Report from Study
  Country: PL (occurrence: PL)
  Receive Date: 20160607
  Receipt Date: 20161012
  Transmission Date: 20170207
  Serious: Yes (Death, Life-Threatening, Hospitalization)
  Sender: FDA-Public Use
  Company Number: PL-ROCHE-1769944

PATIENT
  Age: 66 Year
  Sex: Female
  Weight: 62 kg

DRUGS (5)
  1. CAPECITABINE. [Suspect]
     Active Substance: CAPECITABINE
     Indication: ADENOCARCINOMA GASTRIC
     Dosage: DAYS 1-14?LAST DOSE PRIOR TO SAE ON 18/MAY/2016
     Route: 048
     Dates: start: 20160420
  2. CISPLATIN. [Suspect]
     Active Substance: CISPLATIN
     Indication: ADENOCARCINOMA GASTRIC
     Dosage: DAY 1 ALL ON A 21 DAY CYCLE?LAST DOSE PRIOR TO SAE ON 11/MAY/2016
     Route: 042
     Dates: start: 20160420
  3. INDIX [Concomitant]
     Active Substance: INDAPAMIDE
     Route: 065
     Dates: start: 2010
  4. PRIMACOR (POLAND) [Concomitant]
  5. ROSUVASTATIN. [Concomitant]
     Active Substance: ROSUVASTATIN

REACTIONS (6)
  - Septic shock [Fatal]
  - Dehydration [Fatal]
  - Vomiting [Not Recovered/Not Resolved]
  - Diarrhoea [Fatal]
  - Vomiting [Fatal]
  - Neutropenia [Fatal]

NARRATIVE: CASE EVENT DATE: 20160518
